FAERS Safety Report 21589178 (Version 3)
Quarter: 2023Q1

REPORT INFORMATION
  Report Type: Spontaneous
  Country: US (occurrence: None)
  Receive Date: 20221114
  Receipt Date: 20230105
  Transmission Date: 20230418
  Serious: No
  Sender: FDA-Public Use
  Company Number: 2022A365035

PATIENT
  Age: 21823 Day
  Sex: Male
  Weight: 81.6 kg

DRUGS (5)
  1. FASENRA [Suspect]
     Active Substance: BENRALIZUMAB
     Indication: Asthma
     Dosage: EVERY 4 WEEKS FOR FIRST 3 DOSES AND THEN EVERY 8 WEEKS THEREAFTER
     Route: 058
     Dates: start: 202110, end: 20220705
  2. FASENRA [Suspect]
     Active Substance: BENRALIZUMAB
     Indication: Nasal polyps
     Dosage: EVERY 4 WEEKS FOR FIRST 3 DOSES AND THEN EVERY 8 WEEKS THEREAFTER
     Route: 058
     Dates: start: 202110, end: 20220705
  3. FASENRA [Suspect]
     Active Substance: BENRALIZUMAB
     Indication: Dyspnoea
     Dosage: EVERY 4 WEEKS FOR FIRST 3 DOSES AND THEN EVERY 8 WEEKS THEREAFTER
     Route: 058
     Dates: start: 202110, end: 20220705
  4. SYMBICORT [Suspect]
     Active Substance: BUDESONIDE\FORMOTEROL FUMARATE DIHYDRATE
     Indication: Asthma
     Dosage: TWO TIMES A DAY
     Route: 055
  5. SYMBICORT [Suspect]
     Active Substance: BUDESONIDE\FORMOTEROL FUMARATE DIHYDRATE
     Indication: Dyspnoea
     Dosage: TWO TIMES A DAY
     Route: 055

REACTIONS (2)
  - Chondrocalcinosis [Not Recovered/Not Resolved]
  - Product dose omission issue [Not Recovered/Not Resolved]

NARRATIVE: CASE EVENT DATE: 20220826
